FAERS Safety Report 5922726-0 (Version None)
Quarter: 2008Q4

REPORT INFORMATION
  Report Type: 
  Country: None (occurrence: None)
  Receive Date: 20081017
  Receipt Date: 20081010
  Transmission Date: 20090506
  Serious: Yes (Death, Hospitalization)
  Sender: FDA-Public Use
  Company Number: US-ELI_LILLY_AND_COMPANY-US200810002752

PATIENT
  Age: 76 Year
  Sex: Female

DRUGS (1)
  1. OLANZAPINE [Suspect]

REACTIONS (7)
  - BLOOD GLUCOSE INCREASED [None]
  - DEATH [None]
  - DEMENTIA [None]
  - GLUCOSE TOLERANCE IMPAIRED [None]
  - PARKINSONISM [None]
  - PSYCHOTIC DISORDER [None]
  - WEIGHT INCREASED [None]
